FAERS Safety Report 7286281-8 (Version None)
Quarter: 2011Q1

REPORT INFORMATION
  Report Type: 
  Country: None (occurrence: None)
  Receive Date: 20110210
  Receipt Date: 20110202
  Transmission Date: 20110831
  Serious: Yes (Disabling, Other)
  Sender: FDA-Public Use
  Company Number: PHHY2010JP08185

PATIENT
  Age: 49 Year
  Sex: Female

DRUGS (5)
  1. CELLCEPT [Concomitant]
     Indication: RENAL TRANSPLANT
     Dosage: 1000 MG DAILY
     Route: 048
     Dates: start: 20081121
  2. PREDONINE [Concomitant]
     Indication: RENAL TRANSPLANT
     Dosage: 15 MG
     Route: 048
  3. NEORAL [Suspect]
     Indication: RENAL TRANSPLANT
     Dosage: 360 MG DAILY
     Dates: start: 20081121, end: 20081215
  4. TACROLIMUS [Concomitant]
     Indication: RENAL TRANSPLANT
  5. RITUXIMAB [Concomitant]
     Indication: RENAL TRANSPLANT

REACTIONS (6)
  - APHASIA [None]
  - THROMBOCYTOPENIC PURPURA [None]
  - THROMBOCYTOPENIA [None]
  - HAEMOLYTIC ANAEMIA [None]
  - BLOOD LACTATE DEHYDROGENASE INCREASED [None]
  - BLOOD CREATININE INCREASED [None]
